FAERS Safety Report 22802070 (Version 3)
Quarter: 2025Q1

REPORT INFORMATION
  Report Type: Report from Study
  Country: MX (occurrence: MX)
  Receive Date: 20230809
  Receipt Date: 20250204
  Transmission Date: 20250409
  Serious: No
  Sender: TAKEDA
  Company Number: MX-TAKEDA-MX202005362

PATIENT
  Age: 11 Year
  Sex: Male
  Weight: 30.5 kg

DRUGS (10)
  1. IDURSULFASE [Suspect]
     Active Substance: IDURSULFASE
     Indication: Mucopolysaccharidosis II
     Dates: start: 20161130, end: 20210428
  2. IDURSULFASE [Suspect]
     Active Substance: IDURSULFASE
     Dosage: 3.5 DOSAGE FORM, 1/WEEK
     Dates: start: 2016
  3. IDURSULFASE [Suspect]
     Active Substance: IDURSULFASE
     Dosage: 3 DOSAGE FORM, 1/WEEK
     Dates: start: 20200201
  4. IDURSULFASE [Suspect]
     Active Substance: IDURSULFASE
     Dosage: 3 DOSAGE FORM, 1/WEEK
  5. IDURSULFASE [Suspect]
     Active Substance: IDURSULFASE
     Dosage: UNK UNK, 1/WEEK
  6. COVID-19 VACCINE NOS [Suspect]
     Active Substance: COVID-19 VACCINE
     Indication: COVID-19 immunisation
  7. FUROSEMIDE [Concomitant]
     Active Substance: FUROSEMIDE
  8. DIGOXIN [Concomitant]
     Active Substance: DIGOXIN
  9. SPIRONOLACTONE [Concomitant]
     Active Substance: SPIRONOLACTONE
  10. CAPTOPRIL [Concomitant]
     Active Substance: CAPTOPRIL

REACTIONS (7)
  - Device issue [Unknown]
  - Product availability issue [Not Recovered/Not Resolved]
  - Illness [Recovered/Resolved]
  - Hyperthermia [Recovered/Resolved]
  - Mental disorder [Recovered/Resolved]
  - Product dose omission issue [Recovering/Resolving]
  - Inappropriate schedule of product administration [Recovering/Resolving]

NARRATIVE: CASE EVENT DATE: 20200206
